FAERS Safety Report 19711186 (Version 2)
Quarter: 2022Q1

REPORT INFORMATION
  Report Type: Spontaneous
  Country: US (occurrence: US)
  Receive Date: 20210817
  Receipt Date: 20220316
  Transmission Date: 20220424
  Serious: Yes (Other)
  Sender: FDA-Public Use
  Company Number: US-GILEAD-2021-0544284

PATIENT
  Age: 55 Year
  Sex: Female
  Weight: 63.492 kg

DRUGS (30)
  1. COMPLERA [Suspect]
     Active Substance: EMTRICITABINE\RILPIVIRINE HYDROCHLORIDE\TENOFOVIR DISOPROXIL FUMARATE
     Indication: HIV infection
     Dosage: UNK
     Route: 048
     Dates: start: 2004
  2. ATRIPLA [Suspect]
     Active Substance: EFAVIRENZ\EMTRICITABINE\TENOFOVIR DISOPROXIL FUMARATE
     Indication: HIV infection
     Dosage: UNK
     Route: 048
     Dates: start: 2004
  3. ATRIPLA [Suspect]
     Active Substance: EFAVIRENZ\EMTRICITABINE\TENOFOVIR DISOPROXIL FUMARATE
     Dosage: UNK
     Route: 048
     Dates: start: 2007, end: 201805
  4. TRUVADA [Suspect]
     Active Substance: EMTRICITABINE\TENOFOVIR DISOPROXIL FUMARATE
     Indication: HIV infection
     Dosage: UNK
     Route: 048
     Dates: start: 2004, end: 2007
  5. BIKTARVY [Concomitant]
     Active Substance: BICTEGRAVIR SODIUM\EMTRICITABINE\TENOFOVIR ALAFENAMIDE FUMARATE
  6. KALETRA [Concomitant]
     Active Substance: LOPINAVIR\RITONAVIR
  7. COMBIVIR [Concomitant]
     Active Substance: LAMIVUDINE\ZIDOVUDINE
  8. ZYPREXA [Concomitant]
     Active Substance: OLANZAPINE
  9. FERROUS SULFATE [Concomitant]
     Active Substance: FERROUS SULFATE
  10. DIFLUCAN [Concomitant]
     Active Substance: FLUCONAZOLE
  11. PROCRIT [Concomitant]
     Active Substance: ERYTHROPOIETIN
  12. FLUOXETINE [Concomitant]
     Active Substance: FLUOXETINE HYDROCHLORIDE
  13. WELLBUTRIN [Concomitant]
     Active Substance: BUPROPION HYDROCHLORIDE
  14. ZYRTEC [Concomitant]
     Active Substance: CETIRIZINE HYDROCHLORIDE
  15. CYMBALTA [Concomitant]
     Active Substance: DULOXETINE HYDROCHLORIDE
  16. PREMPRO [Concomitant]
     Active Substance: ESTROGENS, CONJUGATED\MEDROXYPROGESTERONE ACETATE
  17. CLONAZEPAM [Concomitant]
     Active Substance: CLONAZEPAM
  18. EFFEXOR [Concomitant]
     Active Substance: VENLAFAXINE HYDROCHLORIDE
  19. SEROQUEL [Concomitant]
     Active Substance: QUETIAPINE FUMARATE
  20. ALPRAZOLAM [Concomitant]
     Active Substance: ALPRAZOLAM
  21. PROCHLORPERAZINE [Concomitant]
     Active Substance: PROCHLORPERAZINE
  22. BUSPIRONE [Concomitant]
     Active Substance: BUSPIRONE HYDROCHLORIDE
  23. AMOXICILLIN [Concomitant]
     Active Substance: AMOXICILLIN
  24. AMITRIPTYLINE [Concomitant]
     Active Substance: AMITRIPTYLINE
  25. DIAZEPAM [Concomitant]
     Active Substance: DIAZEPAM
  26. CARISOPRODOL [Concomitant]
     Active Substance: CARISOPRODOL
  27. HARVONI [Concomitant]
     Active Substance: LEDIPASVIR\SOFOSBUVIR
  28. BENZONATATE [Concomitant]
     Active Substance: BENZONATATE
  29. AZITHROMYCIN [Concomitant]
     Active Substance: AZITHROMYCIN
  30. ZANAFLEX [Concomitant]
     Active Substance: TIZANIDINE HYDROCHLORIDE

REACTIONS (16)
  - Osteoporosis [Not Recovered/Not Resolved]
  - Chronic kidney disease [Not Recovered/Not Resolved]
  - Sitting disability [Not Recovered/Not Resolved]
  - Bone density decreased [Unknown]
  - Pain [Not Recovered/Not Resolved]
  - Emotional distress [Not Recovered/Not Resolved]
  - Anxiety [Not Recovered/Not Resolved]
  - Anhedonia [Not Recovered/Not Resolved]
  - Skeletal injury [Unknown]
  - Arthralgia [Not Recovered/Not Resolved]
  - Clavicle fracture [Not Recovered/Not Resolved]
  - Bone pain [Not Recovered/Not Resolved]
  - Loss of personal independence in daily activities [Unknown]
  - Mobility decreased [Unknown]
  - Musculoskeletal disorder [Unknown]
  - Blood creatinine increased [Unknown]

NARRATIVE: CASE EVENT DATE: 20110601
